FAERS Safety Report 7917190-6 (Version None)
Quarter: 2011Q4

REPORT INFORMATION
  Report Type: 
  Country: None (occurrence: None)
  Receive Date: 20111116
  Receipt Date: 20111115
  Transmission Date: 20120403
  Serious: Yes (Life-Threatening)
  Sender: FDA-Public Use
  Company Number: IT-BAYER-2011-110550

PATIENT
  Age: 59 Year
  Sex: Male

DRUGS (1)
  1. ASPIRIN [Suspect]
     Indication: OSTEOARTHRITIS
     Dosage: DAILY DOSE 1 DF
     Route: 048
     Dates: start: 20111105, end: 20111105

REACTIONS (1)
  - DUODENAL ULCER HAEMORRHAGE [None]
